FAERS Safety Report 9296816 (Version 1)
Quarter: 2013Q2

REPORT INFORMATION
  Report Type: Spontaneous
  Country: FR (occurrence: FR)
  Receive Date: 20130517
  Receipt Date: 20130517
  Transmission Date: 20140414
  Serious: Yes (Hospitalization, Other)
  Sender: FDA-Public Use
  Company Number: FR-PFIZER INC-2013149087

PATIENT
  Age: 75 Year
  Sex: Male

DRUGS (8)
  1. ALDACTAZINE [Suspect]
     Dosage: 1 DF, 1X/DAY
     Route: 048
     Dates: start: 2009, end: 20130301
  2. TAHOR [Suspect]
     Dosage: 40 MG, 1X/DAY
     Route: 048
     Dates: start: 201202, end: 20130301
  3. CORDARONE [Suspect]
     Indication: ATRIAL FIBRILLATION
     Dosage: 100 MG DAILY
     Route: 048
     Dates: end: 20130301
  4. KENZEN [Suspect]
     Dosage: 16 MG, 1X/DAY
     Route: 048
     Dates: start: 2012, end: 20130301
  5. PREVISCAN [Concomitant]
     Dosage: UNK
     Route: 048
     Dates: end: 20130301
  6. TEMERIT [Concomitant]
     Dosage: 1.25 MG, 1X/DAY
     Route: 048
     Dates: start: 2009, end: 20130301
  7. KARDEGIC [Concomitant]
     Dosage: 75
  8. LEVOTHYROX [Concomitant]
     Indication: HYPOTHYROIDISM
     Dosage: 25 UG, 1X/DAY
     Dates: start: 20130226

REACTIONS (4)
  - Interstitial lung disease [Recovering/Resolving]
  - Respiratory distress [Recovered/Resolved]
  - Hypoxia [Recovering/Resolving]
  - Renal failure acute [Unknown]
